FAERS Safety Report 24028544 (Version 1)
Quarter: 2024Q2

REPORT INFORMATION
  Report Type: Spontaneous
  Country: US (occurrence: None)
  Receive Date: 20240627
  Receipt Date: 20240627
  Transmission Date: 20240715
  Serious: Yes (Hospitalization)
  Sender: FDA-Public Use
  Company Number: None

PATIENT
  Age: 52 Year
  Sex: Male

DRUGS (12)
  1. DALFAMPRIDINE [Suspect]
     Active Substance: DALFAMPRIDINE
     Indication: Gait disturbance
     Dates: start: 20240430
  2. DALFAMPRIDINE [Suspect]
     Active Substance: DALFAMPRIDINE
     Indication: Movement disorder
  3. ADVAIR DISKUS [Concomitant]
     Active Substance: FLUTICASONE PROPIONATE\SALMETEROL XINAFOATE
  4. ALBUTEROL SULFATE [Concomitant]
     Active Substance: ALBUTEROL SULFATE
  5. ATORVASTATIN TAB 20MG [Concomitant]
  6. BACLOFEN [Concomitant]
     Active Substance: BACLOFEN
  7. BACLOFEN TAB 20MG [Concomitant]
  8. CARBAMAZEPINE [Concomitant]
     Active Substance: CARBAMAZEPINE
  9. DEPAKOTE ER TAB 250MG [Concomitant]
  10. LOSARTAN POT TAB 50MG [Concomitant]
  11. LOSARTAN/HCT TAB 100-12.5 [Concomitant]
  12. MAVENCLAD [Concomitant]
     Active Substance: CLADRIBINE

REACTIONS (2)
  - Aortic aneurysm [None]
  - Aortic aneurysm [None]

NARRATIVE: CASE EVENT DATE: 20240601
